FAERS Safety Report 16021622 (Version 2)
Quarter: 2021Q2

REPORT INFORMATION
  Report Type: Spontaneous
  Country: DE (occurrence: DE)
  Receive Date: 20190301
  Receipt Date: 20210429
  Transmission Date: 20210716
  Serious: Yes (Hospitalization, Other)
  Sender: FDA-Public Use
  Company Number: DE-AUROBINDO-AUR-APL-2019-010422

PATIENT
  Age: 4 Year
  Sex: Female
  Weight: 13 kg

DRUGS (5)
  1. LEVETIRACETAM. [Suspect]
     Active Substance: LEVETIRACETAM
     Indication: EPILEPSY
     Dosage: 20 MILLIGRAM/KILOGRAM, ONCE A DAY, DAILY DOSE: 20 MG/KG MILLIGRAM(S)/KILOGRAM EVERY DAYS
     Route: 065
  2. VITADRAL [Concomitant]
     Indication: CONGENITAL ANOMALY
     Dosage: 2 GTT DROPS, ONCE A DAY
     Route: 065
  3. INSULIN [Suspect]
     Active Substance: INSULIN NOS
     Indication: DIABETES MELLITUS
     Dosage: UNK
     Route: 065
  4. MULTIBIONTA [Concomitant]
     Active Substance: MINERALS\PROBIOTICS NOS\VITAMINS
     Indication: CONGENITAL ANOMALY
     Dosage: 36 GTT DROPS, ONCE A DAY
     Route: 065
  5. VEDROP [Concomitant]
     Indication: CONGENITAL ANOMALY
     Dosage: 2 MILLILITER, ONCE A DAY
     Route: 065

REACTIONS (4)
  - Electrolyte imbalance [Recovered/Resolved]
  - Tachycardia [Recovered/Resolved]
  - Ketoacidosis [Recovered/Resolved]
  - Glycosuria [Recovered/Resolved]

NARRATIVE: CASE EVENT DATE: 20180910
